FAERS Safety Report 10375705 (Version 2)
Quarter: 2014Q3

REPORT INFORMATION
  Report Type: Spontaneous
  Country: US (occurrence: US)
  Receive Date: 20140811
  Receipt Date: 20140811
  Transmission Date: 20150326
  Serious: No
  Sender: FDA-Public Use
  Company Number: US-ENDO PHARMACEUTICALS INC.-LISI20140013

PATIENT
  Sex: Female

DRUGS (2)
  1. LISINOPRIL TABLETS 5MG [Suspect]
     Active Substance: LISINOPRIL
     Route: 048
     Dates: start: 201310
  2. LISINOPRIL. [Concomitant]
     Active Substance: LISINOPRIL
     Indication: BLOOD PRESSURE
     Route: 048
     Dates: end: 201310

REACTIONS (5)
  - Blood pressure increased [Not Recovered/Not Resolved]
  - Night sweats [Unknown]
  - Tinnitus [Unknown]
  - Feeling jittery [Unknown]
  - Abdominal discomfort [Unknown]

NARRATIVE: CASE EVENT DATE: 2013
